FAERS Safety Report 17445562 (Version 3)
Quarter: 2020Q1

REPORT INFORMATION
  Report Type: Spontaneous
  Country: US (occurrence: US)
  Receive Date: 20200221
  Receipt Date: 20200327
  Transmission Date: 20200409
  Serious: No
  Sender: FDA-Public Use
  Company Number: US-SUNOVION-2020SUN000508

PATIENT
  Sex: Female

DRUGS (2)
  1. LATUDA [Suspect]
     Active Substance: LURASIDONE HYDROCHLORIDE
     Dosage: UNK
     Route: 048
  2. LATUDA [Suspect]
     Active Substance: LURASIDONE HYDROCHLORIDE
     Dosage: 20 MG DAILY AND 40 MG DAILY
     Route: 048

REACTIONS (6)
  - Feeling abnormal [Unknown]
  - Depressed mood [Unknown]
  - Malaise [Unknown]
  - Irritability [Unknown]
  - Disturbance in attention [Unknown]
  - Therapy cessation [Unknown]
